FAERS Safety Report 9048896 (Version 1)
Quarter: 2013Q1

REPORT INFORMATION
  Report Type: Spontaneous
  Country: US (occurrence: None)
  Receive Date: 20130129
  Receipt Date: 20130129
  Transmission Date: 20140127
  Serious: Yes (Other)
  Sender: FDA-Public Use
  Company Number: None

PATIENT
  Sex: Male
  Weight: 113.4 kg

DRUGS (1)
  1. PROPRANOLOL LA [Suspect]
     Indication: TREMOR

REACTIONS (3)
  - Fatigue [None]
  - Impaired driving ability [None]
  - Product substitution issue [None]
